FAERS Safety Report 8465268-3 (Version None)
Quarter: 2012Q2

REPORT INFORMATION
  Report Type: 
  Country: None (occurrence: None)
  Receive Date: 20120626
  Receipt Date: 20120621
  Transmission Date: 20120825
  Serious: Yes (Hospitalization, Other)
  Sender: FDA-Public Use
  Company Number: PHHY2012VN046627

PATIENT
  Age: 62 Year
  Sex: Female

DRUGS (1)
  1. ZOLEDRONOC ACID [Suspect]
     Indication: OSTEOPOROSIS
     Dosage: 5 MG/ 100 ML
     Route: 042
     Dates: start: 20120501

REACTIONS (7)
  - DEMENTIA [None]
  - AGITATION [None]
  - CEREBRAL ATROPHY [None]
  - PYREXIA [None]
  - PNEUMONITIS [None]
  - DIARRHOEA [None]
  - INSOMNIA [None]
